FAERS Safety Report 4283960-1 (Version None)
Quarter: 2004Q1

REPORT INFORMATION
  Report Type: 
  Country: None (occurrence: None)
  Receive Date: 20040202
  Receipt Date: 20031002
  Transmission Date: 20041129
  Serious: Yes (Death, Hospitalization, Disabling)
  Sender: FDA-Public Use
  Company Number: WAES 0310USA00338

PATIENT
  Age: 55 Year
  Sex: Male

DRUGS (1)
  1. VIOXX [Suspect]
     Route: 048
     Dates: start: 20010601, end: 20010101

REACTIONS (13)
  - ATHEROSCLEROSIS [None]
  - CARDIAC ARREST [None]
  - CARDIOMEGALY [None]
  - CHOLELITHIASIS [None]
  - CORONARY ARTERY ATHEROSCLEROSIS [None]
  - CORONARY ARTERY STENOSIS [None]
  - DILATATION VENTRICULAR [None]
  - EMPHYSEMA [None]
  - HEPATOMEGALY [None]
  - HYPERLIPIDAEMIA [None]
  - PULMONARY CONGESTION [None]
  - VENTRICULAR HYPERTROPHY [None]
  - VOMITING [None]
